FAERS Safety Report 26030550 (Version 2)
Quarter: 2025Q4

REPORT INFORMATION
  Report Type: Report from Study
  Country: CA (occurrence: CA)
  Receive Date: 20251112
  Receipt Date: 20251114
  Transmission Date: 20260118
  Serious: Yes (Other)
  Sender: NOVARTIS
  Company Number: CA-002147023-NVSC2025CA173463

PATIENT
  Age: 62 Year
  Sex: Male

DRUGS (3)
  1. COSENTYX [Suspect]
     Active Substance: SECUKINUMAB
     Indication: Psoriatic arthropathy
     Dosage: 300 MG, QMO
     Route: 058
     Dates: start: 20220426
  2. COSENTYX [Suspect]
     Active Substance: SECUKINUMAB
     Dosage: UNK PREVIOUS  INJECTION WAS ON SEPTEMBER 27TH
     Route: 065
  3. COSENTYX [Suspect]
     Active Substance: SECUKINUMAB
     Dosage: UNK (INJECTION DATE)
     Route: 065
     Dates: start: 20251108

REACTIONS (2)
  - Pneumonia [Unknown]
  - Influenza [Recovering/Resolving]
